FAERS Safety Report 8075160-4 (Version None)
Quarter: 2012Q1

REPORT INFORMATION
  Report Type: 
  Country: None (occurrence: None)
  Receive Date: 20120127
  Receipt Date: 20071106
  Transmission Date: 20120608
  Serious: No
  Sender: FDA-Public Use
  Company Number: 2007BI023745

PATIENT
  Age: 51 Year
  Sex: Female

DRUGS (2)
  1. TYSABRI [Suspect]
     Indication: MULTIPLE SCLEROSIS
     Route: 042
     Dates: start: 20070212, end: 20080811
  2. TYSABRI [Suspect]
     Route: 042
     Dates: start: 20110308

REACTIONS (7)
  - ORAL HERPES [None]
  - CANDIDIASIS [None]
  - MULTIPLE SCLEROSIS [None]
  - LYMPHADENOPATHY [None]
  - HERPES ZOSTER [None]
  - PNEUMONIA [None]
  - CENTRAL NERVOUS SYSTEM LESION [None]
